FAERS Safety Report 8805878 (Version 3)
Quarter: 2012Q4

REPORT INFORMATION
  Report Type: 
  Country: JP (occurrence: JP)
  Receive Date: 20120925
  Receipt Date: 20121030
  Transmission Date: 20130627
  Serious: Yes (Life-Threatening, Hospitalization)
  Sender: FDA-Public Use
  Company Number: JP-ABBOTT-12P-087-0980631-00

PATIENT
  Age: 25 Year
  Sex: Male
  Weight: 60 kg

DRUGS (2)
  1. HUMIRA [Suspect]
     Route: 058
     Dates: start: 20120808, end: 20120808
  2. MESALAZINE [Concomitant]
     Route: 048
     Dates: start: 20110809

REACTIONS (7)
  - Blood pressure decreased [Recovered/Resolved]
  - Dizziness [Recovered/Resolved]
  - Pain [Unknown]
  - Presyncope [Unknown]
  - Nausea [Recovered/Resolved]
  - Cyanosis [Recovered/Resolved]
  - Depressed level of consciousness [Recovered/Resolved]
